FAERS Safety Report 25759932 (Version 1)
Quarter: 2025Q3

REPORT INFORMATION
  Report Type: Spontaneous
  Country: GB (occurrence: GB)
  Receive Date: 20250904
  Receipt Date: 20250904
  Transmission Date: 20251020
  Serious: Yes (Hospitalization, Other)
  Sender: SANDOZ
  Company Number: None

PATIENT
  Age: 62 Year
  Sex: Male

DRUGS (2)
  1. FILGRASTIM [Suspect]
     Active Substance: FILGRASTIM
     Indication: Adverse drug reaction
     Dosage: 960 UG, QD INFO TO FOLLOW
     Route: 065
     Dates: start: 20250802, end: 20250807
  2. PLERIXAFOR [Concomitant]
     Active Substance: PLERIXAFOR
     Indication: Adverse drug reaction
     Route: 065
     Dates: start: 20250805, end: 20250807

REACTIONS (1)
  - Wound haemorrhage [Recovered/Resolved]

NARRATIVE: CASE EVENT DATE: 20250806
